FAERS Safety Report 12869746 (Version 1)
Quarter: 2016Q4

REPORT INFORMATION
  Report Type: Spontaneous
  Country: US (occurrence: US)
  Receive Date: 20161019
  Receipt Date: 20161019
  Transmission Date: 20170207
  Serious: No
  Sender: FDA-Public Use
  Company Number: None

PATIENT

DRUGS (1)
  1. MITOMYCIN, LYOPHILIZED WELLS PHARMACY [Suspect]
     Active Substance: MITOMYCIN
     Dates: start: 20160609

REACTIONS (6)
  - Pyrexia [None]
  - Malaise [None]
  - Asthenia [None]
  - Pain [None]
  - Abdominal discomfort [None]
  - Alopecia [None]
